FAERS Safety Report 11002757 (Version 1)
Quarter: 2015Q2

REPORT INFORMATION
  Report Type: Spontaneous
  Country: JP (occurrence: JP)
  Receive Date: 20150408
  Receipt Date: 20150408
  Transmission Date: 20150821
  Serious: Yes (Death)
  Sender: FDA-Public Use
  Company Number: JP-TEVA-552235ISR

PATIENT
  Age: 65 Year
  Sex: Male

DRUGS (2)
  1. (TYK)CATABON HI INJECTION 600MG, INJ, 600MG [Suspect]
     Active Substance: DOPAMINE HYDROCHLORIDE
     Dosage: INCREASED TO EVENTUALLY 40MICRO G/KG
  2. (TYK)CATABON HI INJECTION 600MG, INJ, 600MG [Suspect]
     Active Substance: DOPAMINE HYDROCHLORIDE
     Indication: BLOOD PRESSURE DECREASED
     Dosage: INITIAL DOSAGE: UNKNOWN

REACTIONS (1)
  - Death [Fatal]
